FAERS Safety Report 22609375 (Version 3)
Quarter: 2023Q2

REPORT INFORMATION
  Report Type: Report from Study
  Country: ZA (occurrence: None)
  Receive Date: 20230616
  Receipt Date: 20230630
  Transmission Date: 20230721
  Serious: Yes (Hospitalization)
  Sender: FDA-Public Use
  Company Number: ZA-Eisai Medical Research-EC-2023-142423

PATIENT
  Age: 35 Year
  Sex: Male
  Weight: 98.9 kg

DRUGS (8)
  1. LENVATINIB [Suspect]
     Active Substance: LENVATINIB
     Indication: Malignant melanoma
     Route: 048
     Dates: start: 20230515, end: 20230604
  2. QUAVONLIMAB [Suspect]
     Active Substance: QUAVONLIMAB
     Indication: Malignant melanoma
     Dosage: QUAVONLIMAB (MK-1308) (+) PEMBROLIZUMAB (MK-3475) 400 MG
     Route: 042
     Dates: start: 20230515, end: 20230515
  3. NALOXONE HYDROCHLORIDE\OXYCODONE HYDROCHLORIDE [Concomitant]
     Active Substance: NALOXONE HYDROCHLORIDE\OXYCODONE HYDROCHLORIDE
     Dates: start: 20230502
  4. OXYCODONE HYDROCHLORIDE [Concomitant]
     Active Substance: OXYCODONE HYDROCHLORIDE
     Dates: start: 20230419
  5. PURGOLENE [Concomitant]
     Dates: start: 20230419
  6. ESCITALOPRAM OXALATE [Concomitant]
     Active Substance: ESCITALOPRAM OXALATE
     Dates: start: 20230518
  7. CEFUROXIME [Concomitant]
     Active Substance: CEFUROXIME
     Dates: start: 20230530, end: 20230604
  8. PEMBROLIZUMAB [Suspect]
     Active Substance: PEMBROLIZUMAB

REACTIONS (1)
  - Anaemia [Not Recovered/Not Resolved]

NARRATIVE: CASE EVENT DATE: 20230602
